FAERS Safety Report 13061398 (Version 8)
Quarter: 2020Q2

REPORT INFORMATION
  Report Type: Report from Study
  Country: US (occurrence: US)
  Receive Date: 20161226
  Receipt Date: 20200519
  Transmission Date: 20200713
  Serious: Yes (Other)
  Sender: FDA-Public Use
  Company Number: PHHY2016US047944

PATIENT
  Age: 38 Year
  Sex: Female

DRUGS (4)
  1. HYPROMELLOSE [Concomitant]
     Active Substance: HYPROMELLOSES
     Indication: PRODUCT USED FOR UNKNOWN INDICATION
     Dosage: USE A FEW TIMES OVER THE NEXT 3 DAYS
     Route: 065
     Dates: start: 20190104, end: 20190107
  2. IBUPROFEN. [Concomitant]
     Active Substance: IBUPROFEN
     Indication: PRODUCT USED FOR UNKNOWN INDICATION
     Dosage: UNK,
     Route: 065
     Dates: start: 20190708, end: 20190715
  3. GILENYA [Suspect]
     Active Substance: FINGOLIMOD HYDROCHLORIDE
     Indication: MULTIPLE SCLEROSIS
     Dosage: UNK, QD
     Route: 048
  4. MACROGOL [Concomitant]
     Active Substance: POLYETHYLENE GLYCOLS
     Indication: PRODUCT USED FOR UNKNOWN INDICATION
     Dosage: USE A FEW TIMES OVER THE NEXT 3 DAYS
     Route: 065
     Dates: start: 20190104, end: 20190107

REACTIONS (12)
  - Palpitations [Recovered/Resolved]
  - Melanocytic naevus [Recovered/Resolved]
  - Vision blurred [Recovered/Resolved]
  - Palpitations [Recovered/Resolved]
  - Scleritis [Recovered/Resolved]
  - White blood cell count decreased [Unknown]
  - Acne [Recovered/Resolved]
  - Skin lesion [Recovered/Resolved]
  - Eye pain [Recovered/Resolved]
  - Dizziness [Recovered/Resolved]
  - Optic neuritis [Recovered/Resolved]
  - Trichiasis [Recovered/Resolved]

NARRATIVE: CASE EVENT DATE: 20160309
